FAERS Safety Report 17557792 (Version 4)
Quarter: 2020Q3

REPORT INFORMATION
  Report Type: Report from Study
  Country: US (occurrence: US)
  Receive Date: 20200319
  Receipt Date: 20200922
  Transmission Date: 20201102
  Serious: No
  Sender: FDA-Public Use
  Company Number: NVSC2020US078170

PATIENT
  Sex: Male

DRUGS (2)
  1. COSENTYX [Suspect]
     Active Substance: SECUKINUMAB
     Dosage: 300 MG, QW
     Route: 058
  2. COSENTYX [Suspect]
     Active Substance: SECUKINUMAB
     Indication: PSORIASIS
     Dosage: 300 MG, QW (BENEATH THE SKIN,USUALLY VIA INJECTION)
     Route: 058

REACTIONS (5)
  - Wound [Unknown]
  - Headache [Unknown]
  - Skin fissures [Unknown]
  - Skin injury [Unknown]
  - Wound secretion [Unknown]
